FAERS Safety Report 5888871-3 (Version None)
Quarter: 2008Q3

REPORT INFORMATION
  Report Type: 
  Country: None (occurrence: None)
  Receive Date: 20080919
  Receipt Date: 20080911
  Transmission Date: 20090109
  Serious: Yes (Other)
  Sender: FDA-Public Use
  Company Number: PHHY2008BR21161

PATIENT
  Age: 35 Year
  Sex: Male
  Weight: 78 kg

DRUGS (1)
  1. FLOTAC [Suspect]
     Indication: BURSITIS
     Dosage: 70 MG, 2 DF
     Route: 048

REACTIONS (3)
  - ENDOSCOPY [None]
  - GASTRIC VARICES HAEMORRHAGE [None]
  - HAEMATOCHEZIA [None]
